FAERS Safety Report 11812431 (Version 1)
Quarter: 2015Q4

REPORT INFORMATION
  Report Type: Spontaneous
  Country: FR (occurrence: FR)
  Receive Date: 20151208
  Receipt Date: 20151208
  Transmission Date: 20160305
  Serious: Yes (Death, Hospitalization, Other)
  Sender: FDA-Public Use
  Company Number: FR-BAXTER-2015BAX064654

PATIENT
  Age: 7 Year
  Sex: Female

DRUGS (30)
  1. HOLOXAN 2000 MG, POUDRE POUR USAGE PARENT?RAL [Suspect]
     Active Substance: IFOSFAMIDE
     Dosage: 3 G/M2 ON DAY 2 AND 3, SECOND API COURSE
     Route: 042
     Dates: start: 20100623
  2. CISPLATINE [Suspect]
     Active Substance: CISPLATIN
     Dosage: ON DAY 1, SECOND API COURSE
     Route: 065
     Dates: start: 20100623
  3. ADRIAMYCIN [Suspect]
     Active Substance: DOXORUBICIN HYDROCHLORIDE
     Dosage: ON DAY 1, AI COURSE
     Route: 065
     Dates: start: 20100923
  4. ZELITREX [Concomitant]
     Active Substance: VALACYCLOVIR HYDROCHLORIDE
     Indication: PRODUCT USED FOR UNKNOWN INDICATION
     Route: 065
     Dates: start: 2006
  5. HOLOXAN 2000 MG, POUDRE POUR USAGE PARENT?RAL [Suspect]
     Active Substance: IFOSFAMIDE
     Dosage: 3 G/M2 ON DAY 1 AND 2, FIRST AI COURSE
     Route: 042
     Dates: start: 20100604
  6. DOXORUBICIN EBEWE [Suspect]
     Active Substance: DOXORUBICIN
     Indication: OSTEOSARCOMA
     Route: 042
     Dates: start: 20100811, end: 20100811
  7. HOLOXAN 2000 MG, POUDRE POUR USAGE PARENT?RAL [Suspect]
     Active Substance: IFOSFAMIDE
     Dosage: 3 G/M2 ON DAY 2 AND 3, FIRST API COURSE
     Route: 042
     Dates: start: 201005
  8. HOLOXAN 2000 MG, POUDRE POUR USAGE PARENT?RAL [Suspect]
     Active Substance: IFOSFAMIDE
     Dosage: 3 G/M2 ON DAY 1 AND 2, SECOND AI COURSE
     Route: 042
     Dates: start: 201007
  9. HOLOXAN 2000 MG, POUDRE POUR USAGE PARENT?RAL [Suspect]
     Active Substance: IFOSFAMIDE
     Dosage: 3 G/M2 ON DAY 2, THIRD API COURSE
     Route: 042
     Dates: start: 20100812, end: 20100812
  10. HOLOXAN 2000 MG, POUDRE POUR USAGE PARENT?RAL [Suspect]
     Active Substance: IFOSFAMIDE
     Dosage: 3 G/M2 ON DAY 1 AND 2, THIRD AI COURSE
     Route: 042
     Dates: start: 20100923
  11. ENDOXAN 1000 MG, POUDRE POUR SOLUTION INJECTABLE [Suspect]
     Active Substance: CYCLOPHOSPHAMIDE
     Indication: CHEMOTHERAPY
     Route: 065
     Dates: start: 20100930
  12. CELLTOP 25 MG, CAPSULE [Suspect]
     Active Substance: ETOPOSIDE
     Dosage: POST-OPERATIVE FIRST VI COURSE
     Route: 065
     Dates: start: 20100901
  13. METHOTREXATE [Suspect]
     Active Substance: METHOTREXATE
     Indication: OSTEOSARCOMA
     Dosage: FIRST OF 3 COURSES
     Route: 065
     Dates: start: 20100316
  14. CISPLATINE MYLAN [Suspect]
     Active Substance: CISPLATIN
     Indication: OSTEOSARCOMA
     Route: 042
     Dates: start: 20100811, end: 20100811
  15. ADRIAMYCIN [Suspect]
     Active Substance: DOXORUBICIN HYDROCHLORIDE
     Dosage: ON DAY 1, FIRST AI COURSE
     Route: 065
     Dates: start: 20100604
  16. HOLOXAN 2000 MG, POUDRE POUR USAGE PARENT?RAL [Suspect]
     Active Substance: IFOSFAMIDE
     Dosage: POST-OPERATIVE VI COURSE
     Route: 065
     Dates: start: 20100901
  17. UROMITEXAN 5 G/50 ML, SOLUTION INJECTABLE POUR PERFUSION EN FLACON [Suspect]
     Active Substance: MESNA
     Indication: OSTEOSARCOMA
     Route: 042
     Dates: start: 20100812
  18. NAVELBINE [Suspect]
     Active Substance: VINORELBINE TARTRATE
     Indication: CHEMOTHERAPY
     Route: 065
     Dates: start: 20100930
  19. CELLTOP 25 MG, CAPSULE [Suspect]
     Active Substance: ETOPOSIDE
     Indication: OSTEOSARCOMA
     Dosage: FROM DAY 1 TO DAY 4, FIRST VI COURSE
     Route: 065
     Dates: start: 201004
  20. LAROXYL [Concomitant]
     Active Substance: AMITRIPTYLINE
     Indication: PROPHYLAXIS
     Route: 065
     Dates: start: 201005
  21. UROMITEXAN 5 G/50 ML, SOLUTION INJECTABLE POUR PERFUSION EN FLACON [Suspect]
     Active Substance: MESNA
     Indication: PROPHYLAXIS
     Dosage: DOSAGE WAS REDUCED FROM 50%
     Route: 042
  22. BACTRIM [Concomitant]
     Active Substance: SULFAMETHOXAZOLE\TRIMETHOPRIM
     Indication: PRODUCT USED FOR UNKNOWN INDICATION
     Dosage: ON MONDAY, WEDNESDAY AND FRIDAY
     Route: 065
     Dates: start: 2006
  23. CISPLATINE [Suspect]
     Active Substance: CISPLATIN
     Indication: OSTEOSARCOMA
     Dosage: ON DAY 1, FIRST API COURSE
     Route: 065
     Dates: start: 201005
  24. ADRIAMYCIN [Suspect]
     Active Substance: DOXORUBICIN HYDROCHLORIDE
     Dosage: ON DAY 1, SECOND API COURSE
     Route: 065
     Dates: start: 20100623
  25. ADRIAMYCIN [Suspect]
     Active Substance: DOXORUBICIN HYDROCHLORIDE
     Dosage: ON DAY 1, THIRD API COURSE
     Route: 065
     Dates: start: 20100812
  26. ADRIAMYCIN [Suspect]
     Active Substance: DOXORUBICIN HYDROCHLORIDE
     Dosage: ON DAY 1, POST-OPERATIVE AI COURSE
     Route: 065
     Dates: start: 20100901
  27. HOLOXAN 2000 MG, POUDRE POUR USAGE PARENT?RAL [Suspect]
     Active Substance: IFOSFAMIDE
     Indication: OSTEOSARCOMA
     Dosage: 3 G/M2, FIRST VI COURSE
     Route: 042
     Dates: start: 201004
  28. CISPLATINE [Suspect]
     Active Substance: CISPLATIN
     Dosage: ON DAY 1, THIRD API COURSE
     Route: 065
     Dates: start: 20100812
  29. ADRIAMYCIN [Suspect]
     Active Substance: DOXORUBICIN HYDROCHLORIDE
     Indication: OSTEOSARCOMA
     Dosage: ON DAY 1, FIRST API COURSE
     Route: 065
     Dates: start: 201005
  30. ADRIAMYCIN [Suspect]
     Active Substance: DOXORUBICIN HYDROCHLORIDE
     Dosage: ON DAY 1, SECOND AI COURSE
     Route: 065
     Dates: start: 201007

REACTIONS (5)
  - Osteosarcoma metastatic [Unknown]
  - Pulmonary mass [Unknown]
  - Metastases to lung [Unknown]
  - Seizure [Recovered/Resolved]
  - Death [Fatal]

NARRATIVE: CASE EVENT DATE: 20100429
